FAERS Safety Report 7534857-2 (Version None)
Quarter: 2011Q2

REPORT INFORMATION
  Report Type: 
  Country: None (occurrence: None)
  Receive Date: 20110609
  Receipt Date: 20110531
  Transmission Date: 20111010
  Serious: Yes (Other)
  Sender: FDA-Public Use
  Company Number: US-BIOGENIDEC-2011BI002712

PATIENT
  Sex: Male
  Weight: 1 kg

DRUGS (1)
  1. TYSABRI [Suspect]
     Indication: DRUG EXPOSURE DURING PREGNANCY
     Route: 064
     Dates: start: 20080418, end: 20100709

REACTIONS (3)
  - SMALL FOR DATES BABY [None]
  - APNOEA [None]
  - INTRAVENTRICULAR HAEMORRHAGE [None]
